FAERS Safety Report 4986219-X (Version None)
Quarter: 2006Q2

REPORT INFORMATION
  Report Type: 
  Country: None (occurrence: None)
  Receive Date: 20060428
  Receipt Date: 20060417
  Transmission Date: 20061013
  Serious: Yes (Other)
  Sender: FDA-Public Use
  Company Number: US-MERCK-0604USA03087

PATIENT
  Age: 86 Year
  Sex: Female

DRUGS (4)
  1. COSOPT [Suspect]
     Indication: OPEN ANGLE GLAUCOMA
     Route: 047
  2. COSOPT [Suspect]
     Route: 047
     Dates: start: 20060301, end: 20060301
  3. COSOPT [Suspect]
     Route: 047
     Dates: start: 20060301
  4. ALPHAGAN [Concomitant]
     Route: 065

REACTIONS (10)
  - BLINDNESS [None]
  - EYE IRRITATION [None]
  - EYE PAIN [None]
  - FALL [None]
  - FEAR [None]
  - HEADACHE [None]
  - OCULAR HYPERAEMIA [None]
  - PAIN [None]
  - PSEUDOPHAKIA [None]
  - SWELLING [None]
